FAERS Safety Report 9737100 (Version 2)
Quarter: 2013Q4

REPORT INFORMATION
  Report Type: Spontaneous
  Country: CH (occurrence: CH)
  Receive Date: 20131206
  Receipt Date: 20131220
  Transmission Date: 20140711
  Serious: Yes (Death, Hospitalization)
  Sender: FDA-Public Use
  Company Number: CH-PFIZER INC-2013349747

PATIENT
  Age: 65 Year
  Sex: Female
  Weight: 39 kg

DRUGS (10)
  1. CISPLATIN TEVA [Suspect]
     Indication: BLADDER TRANSITIONAL CELL CARCINOMA
     Dosage: 100 MG, CYCLIC
     Route: 041
     Dates: start: 20130924, end: 20130924
  2. CISPLATIN TEVA [Suspect]
     Dosage: 100 MG, CYCLIC
     Route: 041
     Dates: start: 20131022, end: 20131022
  3. AMLODIPINE BESILATE [Suspect]
     Dosage: 5 MG, DAILY
     Route: 048
  4. GEMZAR [Suspect]
     Indication: BLADDER TRANSITIONAL CELL CARCINOMA
     Dosage: 1300 MG,1 IN 1 CYCLICAL
     Route: 041
     Dates: start: 20130924, end: 20130924
  5. GEMZAR [Suspect]
     Dosage: 1300 MG,1 IN 1 CYCLICAL
     Route: 041
     Dates: start: 20131022, end: 20131022
  6. GEMZAR [Suspect]
     Dosage: 1300 MG,1 IN 1 CYCLICAL
     Route: 041
     Dates: start: 20131101, end: 20131101
  7. GEMZAR [Suspect]
     Dosage: 1300 MG,1 IN 1 CYCLICAL
     Route: 041
     Dates: start: 20131108, end: 20131108
  8. ACIDUM FOLICUM [Concomitant]
     Dosage: 5 MG, WEEKLY
     Route: 048
  9. MALTOFER [Concomitant]
     Dosage: 20 GTT, DAILY
     Route: 048
  10. VITAMIN D3 ^STREULI^ [Concomitant]
     Dosage: 8 GTT, DAILY
     Route: 048

REACTIONS (13)
  - Disease progression [Fatal]
  - Bladder transitional cell carcinoma [Fatal]
  - Arterial thrombosis [Fatal]
  - Mesenteric artery thrombosis [Fatal]
  - Intestinal ischaemia [Fatal]
  - Ileus [Fatal]
  - Hepatic necrosis [Fatal]
  - Hepatic enzyme increased [Fatal]
  - Abdominal pain [Fatal]
  - C-reactive protein increased [Fatal]
  - Hydronephrosis [Fatal]
  - Escherichia infection [Fatal]
  - Acinetobacter infection [Fatal]
